FAERS Safety Report 5902672-9 (Version None)
Quarter: 2008Q3

REPORT INFORMATION
  Report Type: 
  Country: None (occurrence: None)
  Receive Date: 20080929
  Receipt Date: 20080929
  Transmission Date: 20090109
  Serious: Yes (Hospitalization)
  Sender: FDA-Public Use
  Company Number: None

PATIENT
  Sex: Female

DRUGS (3)
  1. GEODON [Suspect]
     Dosage: GEODON 80  1-2 PRN + HS ORAL
     Route: 048
  2. LAMICTAL [Suspect]
     Dosage: LAMICTAL 200  BID  ORAL
     Route: 048
  3. ATIVAN [Concomitant]

REACTIONS (8)
  - CONTUSION [None]
  - DRUG HYPERSENSITIVITY [None]
  - EXCORIATION [None]
  - FALL [None]
  - INCORRECT DOSE ADMINISTERED [None]
  - JOINT INJURY [None]
  - LIMB INJURY [None]
  - RHABDOMYOLYSIS [None]
